FAERS Safety Report 11679611 (Version 3)
Quarter: 2015Q4

REPORT INFORMATION
  Report Type: Spontaneous
  Country: US (occurrence: US)
  Receive Date: 20151027
  Receipt Date: 20151110
  Transmission Date: 20160304
  Serious: No
  Sender: FDA-Public Use
  Company Number: US-ELI_LILLY_AND_COMPANY-US201001002544

PATIENT
  Sex: Female

DRUGS (14)
  1. FORTEO [Suspect]
     Active Substance: TERIPARATIDE
     Dosage: 20 UG, QD
  2. LOPRESSOR [Concomitant]
     Active Substance: METOPROLOL TARTRATE
     Indication: BLOOD PRESSURE MEASUREMENT
  3. OMEPRAZOLE W/SODIUM BICARBONATE [Concomitant]
     Indication: GASTROOESOPHAGEAL REFLUX DISEASE
     Dosage: UNK, EACH MORNING
  4. DYAZIDE [Concomitant]
     Active Substance: HYDROCHLOROTHIAZIDE\TRIAMTERENE
     Indication: DIURETIC THERAPY
  5. CELEBREX [Concomitant]
     Active Substance: CELECOXIB
     Dosage: UNK, DAILY (1/D)
  6. FORTEO [Suspect]
     Active Substance: TERIPARATIDE
     Dosage: 20 UG, DAILY (1/D)
  7. FORTEO [Suspect]
     Active Substance: TERIPARATIDE
     Dosage: 20 UG, QD
     Dates: end: 20110726
  8. FORTEO [Suspect]
     Active Substance: TERIPARATIDE
     Dosage: 20 UG, DAILY (1/D)
  9. PROTONIX [Concomitant]
     Active Substance: PANTOPRAZOLE SODIUM
     Indication: GASTROOESOPHAGEAL REFLUX DISEASE
     Dosage: UNK, EACH EVENING
  10. MULTIVITAMIN [Concomitant]
     Active Substance: VITAMINS
  11. AMBIEN [Concomitant]
     Active Substance: ZOLPIDEM TARTRATE
     Indication: SLEEP DISORDER
  12. FORTEO [Suspect]
     Active Substance: TERIPARATIDE
     Indication: OSTEOPOROSIS
     Dosage: 20 UG, DAILY (1/D)
     Dates: start: 200908
  13. LIPITOR [Concomitant]
     Active Substance: ATORVASTATIN CALCIUM
     Indication: BLOOD CHOLESTEROL
  14. CALCIUM [Concomitant]
     Active Substance: CALCIUM
     Indication: MINERAL SUPPLEMENTATION

REACTIONS (18)
  - Fall [Recovered/Resolved]
  - Lethargy [Recovered/Resolved]
  - Osteochondrosis [Not Recovered/Not Resolved]
  - Feeling abnormal [Recovered/Resolved]
  - Dizziness [Recovered/Resolved]
  - Cholecystitis [Recovered/Resolved]
  - Gallbladder non-functioning [Recovered/Resolved]
  - Gait disturbance [Unknown]
  - Blister [Not Recovered/Not Resolved]
  - Tremor [Recovered/Resolved]
  - Multiple sclerosis [Unknown]
  - Tremor [Unknown]
  - Depression [Recovered/Resolved]
  - Bone disorder [Unknown]
  - Fatigue [Recovered/Resolved]
  - Balance disorder [Recovered/Resolved]
  - Weight decreased [Unknown]
  - Scab [Unknown]

NARRATIVE: CASE EVENT DATE: 2010
